FAERS Safety Report 6820539-9 (Version None)
Quarter: 2010Q3

REPORT INFORMATION
  Report Type: 
  Country: None (occurrence: None)
  Receive Date: 20100707
  Receipt Date: 20100705
  Transmission Date: 20110219
  Serious: Yes (Hospitalization)
  Sender: FDA-Public Use
  Company Number: FR-BRISTOL-MYERS SQUIBB COMPANY-15178270

PATIENT
  Age: 34 Year
  Sex: Female

DRUGS (4)
  1. ABILIFY [Suspect]
     Indication: MANIA
  2. RIVOTRIL [Suspect]
     Indication: MANIA
     Dosage: STRENGTH-2.5 MG/ML DECREASED TO 3 MG BY 24 HOURS
     Dates: start: 20100528
  3. TEGRETOL [Suspect]
     Dosage: SR
     Route: 048
  4. TERCIAN [Suspect]

REACTIONS (2)
  - HAEMATOMA [None]
  - THROMBOCYTOPENIA [None]
